FAERS Safety Report 10434815 (Version 1)
Quarter: 2014Q3

REPORT INFORMATION
  Report Type: Spontaneous
  Country: US (occurrence: None)
  Receive Date: 20140815
  Receipt Date: 20140815
  Transmission Date: 20150326
  Serious: No
  Sender: FDA-Public Use
  Company Number: 2014TUS003058

PATIENT
  Age: 57 Year
  Sex: Female

DRUGS (2)
  1. EFFEXOR (VENLAFAXINE HYDROCHLORIDE) [Concomitant]
  2. BRINTELLIX [Suspect]
     Active Substance: VORTIOXETINE HYDROBROMIDE
     Indication: MAJOR DEPRESSION
     Dosage: 1/2 TABLET 10 MG SAMPLE, QD, ORAL
     Route: 048

REACTIONS (4)
  - Flushing [None]
  - Agitation [None]
  - Irritability [None]
  - Erythema [None]
